FAERS Safety Report 5410947-5 (Version None)
Quarter: 2007Q3

REPORT INFORMATION
  Report Type: 
  Country: None (occurrence: None)
  Receive Date: 20070810
  Receipt Date: 20070801
  Transmission Date: 20080115
  Serious: Yes (Other)
  Sender: FDA-Public Use
  Company Number: SE-JNJFOC-20070707052

PATIENT
  Age: 26 Year
  Sex: Male

DRUGS (7)
  1. REMICADE [Suspect]
     Route: 042
  2. REMICADE [Suspect]
     Route: 042
  3. REMICADE [Suspect]
     Indication: CROHN'S DISEASE
     Route: 042
  4. HUMIRA [Suspect]
     Indication: CROHN'S DISEASE
     Route: 058
  5. AZATHIOPRINE SODIUM [Concomitant]
  6. REMERON [Concomitant]
  7. OMEPRAZOLE [Concomitant]

REACTIONS (5)
  - ANAPHYLACTIC REACTION [None]
  - COLECTOMY [None]
  - ILEOSTOMY [None]
  - INFUSION RELATED REACTION [None]
  - MULTIPLE SCLEROSIS [None]
